FAERS Safety Report 14236973 (Version 1)
Quarter: 2017Q4

REPORT INFORMATION
  Report Type: Spontaneous
  Country: DE (occurrence: DE)
  Receive Date: 20171129
  Receipt Date: 20171129
  Transmission Date: 20180321
  Serious: Yes (Hospitalization)
  Sender: FDA-Public Use
  Company Number: DE-TEVA-2017-DE-826077

PATIENT
  Age: 72 Year
  Sex: Male
  Weight: 114 kg

DRUGS (8)
  1. METFORMIN [Concomitant]
     Active Substance: METFORMIN HYDROCHLORIDE
  2. RAMIPRIL. [Suspect]
     Active Substance: RAMIPRIL
     Indication: CARDIAC FAILURE
     Route: 048
  3. GABAPENTIN. [Concomitant]
     Active Substance: GABAPENTIN
  4. ELIQUIS [Concomitant]
     Active Substance: APIXABAN
  5. SPIRONOLACTON [Concomitant]
     Active Substance: SPIRONOLACTONE
  6. METOPROLOL. [Concomitant]
     Active Substance: METOPROLOL
  7. FLUVASTATIN [Concomitant]
     Active Substance: FLUVASTATIN SODIUM
  8. HCT [Concomitant]
     Active Substance: HYDROCHLOROTHIAZIDE

REACTIONS (2)
  - Parotitis [Not Recovered/Not Resolved]
  - Testicular pain [Not Recovered/Not Resolved]

NARRATIVE: CASE EVENT DATE: 20171027
